FAERS Safety Report 4560721-7 (Version None)
Quarter: 2005Q1

REPORT INFORMATION
  Report Type: 
  Country: None (occurrence: None)
  Receive Date: 20050121
  Receipt Date: 20050117
  Transmission Date: 20050727
  Serious: Yes (Life-Threatening)
  Sender: FDA-Public Use
  Company Number: 2005CG00139

PATIENT
  Age: 85 Year
  Sex: Female
  Weight: 64 kg

DRUGS (6)
  1. OMEPRAZOLE [Suspect]
     Dosage: 20 MG QD PO
     Route: 048
     Dates: end: 20041204
  2. AUGMENTIN '125' [Suspect]
     Indication: LUNG DISORDER
     Dosage: 1 G TID PO
     Route: 048
     Dates: start: 20041202, end: 20041204
  3. TAVANIC [Suspect]
     Indication: LUNG DISORDER
     Dosage: 500 MG BID PO
     Route: 048
     Dates: start: 20041202, end: 20041203
  4. IXEL [Suspect]
     Dosage: 100 MG QD PO
     Route: 048
     Dates: end: 20041204
  5. CORDARONE [Concomitant]
  6. REMINYL [Concomitant]

REACTIONS (3)
  - C-REACTIVE PROTEIN INCREASED [None]
  - HAEMATOMA [None]
  - THROMBOCYTOPENIC PURPURA [None]
